FAERS Safety Report 24650464 (Version 1)
Quarter: 2024Q4

REPORT INFORMATION
  Report Type: Spontaneous
  Country: US (occurrence: US)
  Receive Date: 20241122
  Receipt Date: 20241122
  Transmission Date: 20250115
  Serious: No
  Sender: ALVOGEN
  Company Number: US-ALVOGEN-2024093125

PATIENT
  Age: 89 Year
  Sex: Female

DRUGS (2)
  1. TERIPARATIDE [Suspect]
     Active Substance: TERIPARATIDE
     Indication: Sjogren^s syndrome
     Dosage: EXPIRATION DATE: UU-DEC-2024?NO INJECTION WAS PERFORMED?20 MCG, DAILY?250 MCG/ML
     Route: 058
  2. TERIPARATIDE [Suspect]
     Active Substance: TERIPARATIDE
     Indication: Sjogren^s syndrome
     Dosage: SEVERAL MONTHS OF EXPERIENCE?20 MCG, DAILY?250 MCG/ML
     Route: 058
     Dates: start: 202307

REACTIONS (5)
  - Device malfunction [Unknown]
  - Device operational issue [Unknown]
  - Product dose omission issue [Unknown]
  - Device defective [Unknown]
  - Off label use [Unknown]

NARRATIVE: CASE EVENT DATE: 20230701
